FAERS Safety Report 5733905-X (Version None)
Quarter: 2008Q2

REPORT INFORMATION
  Report Type: 
  Country: None (occurrence: None)
  Receive Date: 20080509
  Receipt Date: 20080403
  Transmission Date: 20081010
  Serious: No
  Sender: FDA-Public Use
  Company Number: US-BOEHRINGER INGELHEIM GMBH, GERMANY-2008-BP-05193BP

PATIENT
  Sex: Female

DRUGS (15)
  1. MIRAPEX [Suspect]
     Indication: RESTLESS LEGS SYNDROME
     Route: 048
     Dates: start: 20070101
  2. TOPROL-XL [Concomitant]
     Indication: HYPERTENSION
  3. DIOVAN HCT [Concomitant]
     Indication: HYPERTENSION
  4. FUROSEMIDE [Concomitant]
     Indication: HYPERTENSION
  5. DUONEB [Concomitant]
     Indication: CHRONIC OBSTRUCTIVE PULMONARY DISEASE
  6. ALBUTEROL [Concomitant]
     Indication: ASTHMA
  7. ADVAIR DISKUS 100/50 [Concomitant]
     Indication: CHRONIC OBSTRUCTIVE PULMONARY DISEASE
  8. SINGULAIR [Concomitant]
     Indication: ASTHMA
  9. DARVOCET N [Concomitant]
     Indication: PAIN
  10. LOVAZA [Concomitant]
     Indication: BLOOD CHOLESTEROL INCREASED
  11. TRIGLIDE [Concomitant]
     Indication: BLOOD CHOLESTEROL INCREASED
  12. RISPERDAL [Concomitant]
  13. ATIVAN [Concomitant]
     Indication: ANXIETY
  14. SEROQUEL [Concomitant]
     Indication: BIPOLAR DISORDER
  15. CYMBALTA [Concomitant]
     Indication: ANXIETY

REACTIONS (4)
  - ABDOMINAL DISTENSION [None]
  - ABDOMINAL PAIN UPPER [None]
  - CONSTIPATION [None]
  - FLATULENCE [None]
